FAERS Safety Report 5991016-2 (Version None)
Quarter: 2008Q4

REPORT INFORMATION
  Report Type: 
  Country: None (occurrence: None)
  Receive Date: 20081211
  Receipt Date: 20081204
  Transmission Date: 20090506
  Serious: Yes (Life-Threatening, Hospitalization)
  Sender: FDA-Public Use
  Company Number: US-MERCK-0812USA01570

PATIENT
  Age: 57 Year
  Sex: Male

DRUGS (1)
  1. ZOCOR [Suspect]
     Indication: BLOOD CHOLESTEROL INCREASED
     Route: 048
     Dates: start: 20080801, end: 20081015

REACTIONS (12)
  - ADVERSE EVENT [None]
  - BACK PAIN [None]
  - BLADDER DISORDER [None]
  - FALL [None]
  - FEAR [None]
  - MUSCULOSKELETAL PAIN [None]
  - NECK PAIN [None]
  - NERVE INJURY [None]
  - PAIN [None]
  - PAIN IN EXTREMITY [None]
  - RENAL FAILURE [None]
  - RHABDOMYOLYSIS [None]
